FAERS Safety Report 10631620 (Version 3)
Quarter: 2015Q1

REPORT INFORMATION
  Report Type: Spontaneous
  Country: JP (occurrence: JP)
  Receive Date: 20141205
  Receipt Date: 20150218
  Transmission Date: 20150720
  Serious: Yes (Other)
  Sender: FDA-Public Use
  Company Number: JP-ABBVIE-12P-087-0905459-00

PATIENT
  Age: 84 Year
  Sex: Male
  Weight: 51 kg

DRUGS (2)
  1. LEUPLIN SR FOR INJECTION KIT 11.25 MG [Suspect]
     Active Substance: LEUPROLIDE ACETATE
     Indication: PROSTATE CANCER
     Route: 058
     Dates: start: 20091202
  2. ACETYLSALICYLIC ACID [Concomitant]
     Active Substance: ASPIRIN
     Indication: PRODUCT USED FOR UNKNOWN INDICATION

REACTIONS (1)
  - Injection site granuloma [Recovering/Resolving]

NARRATIVE: CASE EVENT DATE: 201103
